FAERS Safety Report 12777048 (Version 2)
Quarter: 2016Q4

REPORT INFORMATION
  Report Type: Spontaneous
  Country: US (occurrence: US)
  Receive Date: 20160923
  Receipt Date: 20161121
  Transmission Date: 20170207
  Serious: No
  Sender: FDA-Public Use
  Company Number: US-ASTRAZENECA-2016SE95647

PATIENT
  Sex: Female
  Weight: 98.4 kg

DRUGS (4)
  1. BYETTA [Suspect]
     Active Substance: EXENATIDE
     Indication: DIABETES MELLITUS
     Dosage: 10.0UG UNKNOWN
     Route: 065
     Dates: end: 201606
  2. BYDUREON [Suspect]
     Active Substance: EXENATIDE
     Indication: TYPE 2 DIABETES MELLITUS
     Route: 058
     Dates: start: 201606
  3. BLOOD THINNER MEDICATION [Concomitant]
     Indication: ANTICOAGULANT THERAPY
  4. LANTUS [Concomitant]
     Active Substance: INSULIN GLARGINE
     Indication: DIABETES MELLITUS
     Dosage: 35 UNITS  EVERY MORNING

REACTIONS (7)
  - Weight increased [Unknown]
  - Joint swelling [Unknown]
  - Intentional product misuse [Unknown]
  - Contusion [Unknown]
  - Weight decreased [Unknown]
  - Constipation [Unknown]
  - Product quality issue [Unknown]
